FAERS Safety Report 25248886 (Version 1)
Quarter: 2025Q2

REPORT INFORMATION
  Report Type: Spontaneous
  Country: PL (occurrence: PL)
  Receive Date: 20250429
  Receipt Date: 20250429
  Transmission Date: 20250716
  Serious: Yes (Hospitalization)
  Sender: BIOVITRUM
  Company Number: None

PATIENT
  Age: 5 Month
  Sex: Male
  Weight: 6 kg

DRUGS (1)
  1. SYNAGIS [Suspect]
     Active Substance: PALIVIZUMAB
     Indication: Product used for unknown indication
     Route: 030

REACTIONS (9)
  - Pyrexia [Recovered/Resolved with Sequelae]
  - Sluggishness [Recovered/Resolved with Sequelae]
  - Decreased appetite [Recovered/Resolved with Sequelae]
  - Hyperaesthesia [Recovered/Resolved with Sequelae]
  - Pain [Recovered/Resolved with Sequelae]
  - Hydrocephalus [Recovered/Resolved with Sequelae]
  - Meningitis bacterial [Recovered/Resolved with Sequelae]
  - Encephalitis [Recovered/Resolved with Sequelae]
  - Septic shock [Recovered/Resolved with Sequelae]
